FAERS Safety Report 9145540 (Version 1)
Quarter: 2013Q1

REPORT INFORMATION
  Report Type: Spontaneous
  Country: US (occurrence: None)
  Receive Date: 20130207
  Receipt Date: 20130207
  Transmission Date: 20140127
  Serious: Yes (Death)
  Sender: FDA-Public Use
  Company Number: SYN-0399-2013

PATIENT
  Age: 63 Year
  Sex: Male

DRUGS (7)
  1. TAMSULOSIN CAPSULES [Suspect]
     Indication: PRODUCT USED FOR UNKNOWN INDICATION
  2. BUPROPION [Concomitant]
  3. MIRTAZAPINE [Concomitant]
  4. ZOLPIDEM [Concomitant]
  5. VERAPAMIL [Concomitant]
  6. TOLTERODINE [Concomitant]
  7. VALPROIC ACID [Concomitant]

REACTIONS (1)
  - Completed suicide [None]
